FAERS Safety Report 9913996 (Version 3)
Quarter: 2014Q2

REPORT INFORMATION
  Report Type: Report from Study
  Country: US (occurrence: US)
  Receive Date: 20140220
  Receipt Date: 20140516
  Transmission Date: 20141212
  Serious: Yes (Hospitalization)
  Sender: FDA-Public Use
  Company Number: US-PFIZER INC-2014045058

PATIENT
  Age: 59 Year
  Sex: Male
  Weight: 66.8 kg

DRUGS (14)
  1. DOXORUBICIN HCL [Suspect]
     Indication: SARCOMA
     Dosage: CYCLIC
     Dates: start: 20130130
  2. DOXORUBICIN HCL [Suspect]
     Dosage: 75 MG/M2 / 138MG / BOLUS / CYCLE# 6
     Dates: start: 20130515
  3. ATENOLOL [Concomitant]
     Dosage: UNK
     Dates: start: 2003
  4. RANITIDINE [Concomitant]
     Dosage: UNK
     Dates: start: 2006
  5. LIDOCAINE AND PRILOCAINE [Concomitant]
     Dosage: UNK
     Dates: start: 20130130
  6. LORAZEPAM [Concomitant]
     Dosage: UNK
     Dates: start: 20130130
  7. OXYCODONE [Concomitant]
     Dosage: UNK
     Dates: start: 20130130
  8. PROCHLORPERAZINE MALEATE [Concomitant]
     Dosage: UNK
     Dates: start: 20130130
  9. PALONOSETRON [Concomitant]
     Dosage: UNK
     Dates: start: 20130130
  10. DEXAMETHASONE [Concomitant]
     Dosage: UNK
     Dates: start: 20130130
  11. FOSAPREPITANT [Concomitant]
     Dosage: UNK
     Dates: start: 20130130
  12. BENZONATATE [Concomitant]
     Dosage: UNK
     Dates: start: 20130408, end: 20130814
  13. ALBUTEROL SULFATE/IPRATROPIUM BROMIDE [Concomitant]
     Dosage: UNK
     Dates: start: 20130506, end: 20131003
  14. MAGIC MOUTHWASH [Concomitant]

REACTIONS (1)
  - Pancytopenia [Recovered/Resolved]
